FAERS Safety Report 9019586 (Version 1)
Quarter: 2013Q1

REPORT INFORMATION
  Report Type: Spontaneous
  Country: US (occurrence: US)
  Receive Date: 20130118
  Receipt Date: 20130118
  Transmission Date: 20140127
  Serious: Yes (Death)
  Sender: FDA-Public Use
  Company Number: US-SHIONOGI, INC-2013000058

PATIENT
  Sex: Female

DRUGS (12)
  1. LISINOPRIL [Suspect]
     Dosage: UNK
  2. HYDROCHLOROTHIAZIDE [Suspect]
     Dosage: UNK
  3. VITAMIN D [Suspect]
     Dosage: UNK
  4. CLONIDINE [Suspect]
     Dosage: UNK
  5. AMOXICILLIN [Suspect]
     Dosage: UNK
  6. HYDROCODONE/ACETAMINOPHEN [Suspect]
     Dosage: UNK
  7. NICARDIPINE HCL [Suspect]
     Dosage: UNK
  8. ETHANOL [Suspect]
     Dosage: UNK
  9. METOPROLOL [Suspect]
     Dosage: UNK
  10. INSULIN [Suspect]
     Dosage: UNK
  11. METFORMIN HCL [Suspect]
     Dosage: UNK
  12. CYCLOBENZAPRINE [Suspect]
     Dosage: UNK

REACTIONS (2)
  - Cardio-respiratory arrest [Fatal]
  - Completed suicide [Fatal]
